FAERS Safety Report 4870916-0 (Version None)
Quarter: 2005Q4

REPORT INFORMATION
  Report Type: 
  Country: None (occurrence: None)
  Receive Date: 20051228
  Receipt Date: 20051212
  Transmission Date: 20060501
  Serious: Yes (Death, Hospitalization)
  Sender: FDA-Public Use
  Company Number: CA200512002284

PATIENT
  Age: 47 Year
  Sex: Female

DRUGS (9)
  1. GEMCITABINE HYDROCHLORIDE(GEMCITABINE HYDROCHLORIDE) VIAL [Suspect]
     Indication: METASTATIC CARCINOMA OF THE BLADDER
     Dosage: 1000 MG/M2, OTHER, INTRAVENOUS
     Route: 042
     Dates: start: 20050908
  2. CISPLATIN [Concomitant]
  3. DEXAMETHASONE [Concomitant]
  4. ONDANSETRON [Concomitant]
  5. OMEPRAZOLE [Concomitant]
  6. PROCHLORPERAZINE MALEATE [Concomitant]
  7. LORAZEPAM [Concomitant]
  8. MANNITOL [Concomitant]
  9. FUROSEMIDE [Concomitant]

REACTIONS (14)
  - ARTERIAL OCCLUSIVE DISEASE [None]
  - ASTHENIA [None]
  - BLOOD PRESSURE DECREASED [None]
  - CARDIAC ARREST [None]
  - CHEST X-RAY ABNORMAL [None]
  - EMBOLISM [None]
  - GASTRITIS [None]
  - MALAISE [None]
  - MYOCARDIAL INFARCTION [None]
  - NAUSEA [None]
  - NEUTROPENIA [None]
  - PLATELET COUNT DECREASED [None]
  - PYREXIA [None]
  - VOMITING [None]
